FAERS Safety Report 6275876-6 (Version None)
Quarter: 2009Q3

REPORT INFORMATION
  Report Type: 
  Country: None (occurrence: None)
  Receive Date: 20090720
  Receipt Date: 20090707
  Transmission Date: 20100115
  Serious: Yes (Other)
  Sender: FDA-Public Use
  Company Number: 2009AP002761

PATIENT
  Age: 69 Year
  Sex: Male

DRUGS (2)
  1. DOXAZOSIN MESYLATE [Suspect]
     Indication: HYPERTENSION
     Dosage: .5 TAB; BID; PO
     Route: 048
  2. AVODART [Suspect]
     Indication: BENIGN PROSTATIC HYPERPLASIA

REACTIONS (4)
  - CHEST DISCOMFORT [None]
  - DYSPNOEA [None]
  - DYSURIA [None]
  - RASH [None]
